FAERS Safety Report 21196584 (Version 4)
Quarter: 2022Q4

REPORT INFORMATION
  Report Type: Spontaneous
  Country: US (occurrence: US)
  Receive Date: 20220810
  Receipt Date: 20221128
  Transmission Date: 20230112
  Serious: No
  Sender: FDA-Public Use
  Company Number: US-BRISTOL-MYERS SQUIBB COMPANY-2022-088150

PATIENT
  Age: 86 Year
  Sex: Female

DRUGS (1)
  1. REVLIMID [Suspect]
     Active Substance: LENALIDOMIDE
     Indication: Plasma cell myeloma
     Dosage: FREQUENCY: TAKE 1 CAPSULE BY MOUTH WHOLE EVERY DAY ON DAYS 1-21 OF EACH 35-DAY CYCLE. DO NOT BREAK,
     Route: 048

REACTIONS (7)
  - Scab [Recovered/Resolved]
  - Rash [Unknown]
  - Pruritus [Unknown]
  - Skin burning sensation [Unknown]
  - Pruritus [Unknown]
  - Intentional product use issue [Unknown]
  - Oral pain [Unknown]
